FAERS Safety Report 8949730 (Version 5)
Quarter: 2013Q1

REPORT INFORMATION
  Report Type: Report from Study
  Country: FR (occurrence: FR)
  Receive Date: 20121206
  Receipt Date: 20130226
  Transmission Date: 20140127
  Serious: Yes (Hospitalization)
  Sender: FDA-Public Use
  Company Number: FR-ROCHE-1163276

PATIENT
  Age: 45 Year
  Sex: Male
  Weight: 75 kg

DRUGS (17)
  1. PEG-INTERFERON ALFA 2A [Suspect]
     Indication: HEPATITIS C
     Route: 058
     Dates: start: 20120718
  2. RIBAVIRIN [Suspect]
     Indication: HEPATITIS C
     Route: 048
     Dates: start: 20120718
  3. RIBAVIRIN [Suspect]
     Route: 048
     Dates: start: 20120718, end: 20120718
  4. RIBAVIRIN [Suspect]
     Route: 048
     Dates: start: 20120719, end: 20120807
  5. RIBAVIRIN [Suspect]
     Route: 048
     Dates: start: 20120808, end: 20120828
  6. RIBAVIRIN [Suspect]
     Dosage: 400 MG IN MORNING AND 200 MG IN EVENING
     Route: 048
     Dates: start: 20120829, end: 20121009
  7. RIBAVIRIN [Suspect]
     Route: 048
     Dates: start: 20121010
  8. TELAPREVIR [Suspect]
     Indication: HEPATITIS C
     Route: 048
     Dates: start: 20120718, end: 20120718
  9. TELAPREVIR [Suspect]
     Route: 048
     Dates: start: 20120718, end: 20121009
  10. TRAMADOL [Concomitant]
     Indication: HEADACHE
     Route: 065
     Dates: start: 20120829
  11. IMOVANE [Concomitant]
     Indication: ASTHENIA
     Route: 065
     Dates: start: 20120829
  12. NEBILOX [Concomitant]
     Indication: HYPERTENSION
  13. EXFORGE [Concomitant]
     Indication: HYPERTENSION
  14. ASPEGIC [Concomitant]
     Indication: THROMBOSIS
  15. LEXOMIL [Concomitant]
     Indication: INSOMNIA
  16. CORTANCYL [Concomitant]
     Indication: IMMUNOSUPPRESSION
     Route: 065
     Dates: start: 20120719
  17. DAFALGAN [Concomitant]
     Indication: INFLUENZA LIKE ILLNESS
     Route: 065
     Dates: start: 20120718

REACTIONS (1)
  - Autoimmune hepatitis [Recovered/Resolved]
